FAERS Safety Report 8500660-X (Version None)
Quarter: 2012Q3

REPORT INFORMATION
  Report Type: 
  Country: None (occurrence: None)
  Receive Date: 20120710
  Receipt Date: 20120630
  Transmission Date: 20120928
  Serious: Yes (Hospitalization, Other)
  Sender: FDA-Public Use
  Company Number: GB-EISAI INC-E7389-02455-SPO-GB

PATIENT
  Age: 55 Year
  Sex: Female
  Weight: 38.7 kg

DRUGS (1)
  1. HALAVEN [Suspect]
     Route: 041
     Dates: start: 20111103, end: 20120305

REACTIONS (4)
  - DEAFNESS BILATERAL [None]
  - BALANCE DISORDER [None]
  - NAUSEA [None]
  - HEADACHE [None]
